FAERS Safety Report 16299244 (Version 1)
Quarter: 2019Q2

REPORT INFORMATION
  Report Type: Spontaneous
  Country: US (occurrence: US)
  Receive Date: 20190405
  Receipt Date: 20190405
  Transmission Date: 20190711
  Serious: Yes (Life-Threatening, Hospitalization)
  Sender: FDA-Public Use
  Company Number: None

PATIENT
  Age: 75 Year
  Sex: Male
  Weight: 99.79 kg

DRUGS (9)
  1. ATORVASTATIN [Concomitant]
     Active Substance: ATORVASTATIN
  2. SOTALOL. [Concomitant]
     Active Substance: SOTALOL
  3. METFORMIN [Concomitant]
     Active Substance: METFORMIN HYDROCHLORIDE
  4. B3 [Concomitant]
  5. LOSARTAN. [Suspect]
     Active Substance: LOSARTAN
     Indication: RENAL DISORDER
     Route: 048
     Dates: start: 2016, end: 20190307
  6. VITAMIN B12 [Concomitant]
     Active Substance: CYANOCOBALAMIN
  7. OMEPRAZOLE. [Concomitant]
     Active Substance: OMEPRAZOLE
  8. XARELTO [Concomitant]
     Active Substance: RIVAROXABAN
  9. ONGLYZA [Concomitant]
     Active Substance: SAXAGLIPTIN HYDROCHLORIDE

REACTIONS (2)
  - Metastases to liver [None]
  - Pancreatic carcinoma [None]

NARRATIVE: CASE EVENT DATE: 20190110
